FAERS Safety Report 6749698-3 (Version None)
Quarter: 2010Q2

REPORT INFORMATION
  Report Type: 
  Country: None (occurrence: None)
  Receive Date: 20100601
  Receipt Date: 20100521
  Transmission Date: 20101027
  Serious: Yes (Other)
  Sender: FDA-Public Use
  Company Number: DZ-ASTRAZENECA-2010SE23419

PATIENT
  Age: 52 Year
  Sex: Male
  Weight: 70 kg

DRUGS (1)
  1. NEXIUM [Suspect]
     Indication: GASTRITIS
     Route: 048
     Dates: start: 20100415, end: 20100418

REACTIONS (4)
  - AGGRESSION [None]
  - AGITATION [None]
  - DELIRIUM [None]
  - HALLUCINATION [None]
